FAERS Safety Report 4891918-4 (Version None)
Quarter: 2006Q1

REPORT INFORMATION
  Report Type: 
  Country: None (occurrence: None)
  Receive Date: 20060123
  Receipt Date: 20060106
  Transmission Date: 20060701
  Serious: Yes (Hospitalization)
  Sender: FDA-Public Use
  Company Number: 218162

PATIENT
  Age: 48 Year
  Sex: Female
  Weight: 45 kg

DRUGS (11)
  1. RITUXAN [Suspect]
     Indication: GLOMERULONEPHRITIS CHRONIC
     Dosage: 150 MG/M2, INTRAVENOUS
     Route: 042
     Dates: start: 20040911, end: 20040914
  2. FK-506 (TACROLIMUS) [Suspect]
  3. PREDNISOLONE [Suspect]
  4. MYCOPHENOLATE MOFETIL (MYCOPHENOLATE MOFETIL) [Suspect]
  5. BASILIXIMAB (BASILIXIMAB) [Suspect]
     Dosage: 20 MG, INTRAVENOUS
     Route: 042
     Dates: start: 20040904, end: 20040908
  6. GANCICLOVIR SODIUM [Suspect]
     Indication: CYTOMEGALOVIRUS INFECTION
     Dates: start: 20050921
  7. PLASMAPHERESIS (PLASMA PHERESIS) [Concomitant]
  8. TACROLIMUS HYDRATE (TACROLIMUS) [Concomitant]
  9. PREDNISOLONE [Concomitant]
  10. CELLCEPT [Concomitant]
  11. BASILIXIMAB (BASILIXIMAB) [Concomitant]

REACTIONS (9)
  - AGRANULOCYTOSIS [None]
  - CYTOMEGALOVIRUS INFECTION [None]
  - HAEMODIALYSIS [None]
  - HYPOGAMMAGLOBULINAEMIA [None]
  - IMMUNOSUPPRESSION [None]
  - MYELOID MATURATION ARREST [None]
  - NEUTROPENIA [None]
  - NEUTROPHIL COUNT DECREASED [None]
  - TRANSPLANT REJECTION [None]
